FAERS Safety Report 15998214 (Version 1)
Quarter: 2019Q1

REPORT INFORMATION
  Report Type: Spontaneous
  Country: NL (occurrence: NL)
  Receive Date: 20190223
  Receipt Date: 20190223
  Transmission Date: 20190418
  Serious: Yes (Other)
  Sender: FDA-Public Use
  Company Number: NL-ACCORD-109102

PATIENT
  Age: 54 Year
  Sex: Female

DRUGS (1)
  1. MITOMYCIN. [Suspect]
     Active Substance: MITOMYCIN
     Indication: PTERYGIUM OPERATION
     Dosage: STRENGTH  0.2 MG / ML?ONCE IN OK
     Dates: start: 20180412

REACTIONS (2)
  - Off label use [Unknown]
  - Scleral thinning [Unknown]

NARRATIVE: CASE EVENT DATE: 20180501
